FAERS Safety Report 9801997 (Version 2)
Quarter: 2014Q1

REPORT INFORMATION
  Report Type: Report from Study
  Country: FR (occurrence: FR)
  Receive Date: 20140107
  Receipt Date: 20140107
  Transmission Date: 20141002
  Serious: Yes (Hospitalization, Other)
  Sender: FDA-Public Use
  Company Number: FR-BRISTOL-MYERS SQUIBB COMPANY-15853989

PATIENT
  Age: 52 Year
  Sex: Male

DRUGS (3)
  1. IPILIMUMAB [Suspect]
     Indication: MALIGNANT MELANOMA
     Dosage: 800MG
     Route: 042
     Dates: start: 20101008
  2. MOPRAL [Concomitant]
     Dates: start: 20110324
  3. EFFERALGAN [Concomitant]
     Dates: start: 20110324

REACTIONS (2)
  - Asthenia [Recovered/Resolved]
  - Pyrexia [Recovered/Resolved]
